FAERS Safety Report 15607736 (Version 3)
Quarter: 2019Q3

REPORT INFORMATION
  Report Type: Spontaneous
  Country: US (occurrence: US)
  Receive Date: 20181112
  Receipt Date: 20190926
  Transmission Date: 20191004
  Serious: Yes (Other)
  Sender: FDA-Public Use
  Company Number: US-ASTRAZENECA-2018SE98743

PATIENT
  Age: 19970 Day
  Sex: Female

DRUGS (6)
  1. NIFEDIPINE. [Concomitant]
     Active Substance: NIFEDIPINE
     Indication: PRURITUS
     Route: 065
     Dates: start: 20150319
  2. PROCRIT [Concomitant]
     Active Substance: ERYTHROPOIETIN
     Dosage: 20,000 UNITL2 ML INJ
     Route: 065
  3. PRILOSEC [Suspect]
     Active Substance: OMEPRAZOLE MAGNESIUM
     Indication: GASTROOESOPHAGEAL REFLUX DISEASE
     Route: 048
     Dates: start: 20100701, end: 20130801
  4. LISINOPRIL. [Concomitant]
     Active Substance: LISINOPRIL
     Indication: COUGH
     Route: 065
     Dates: start: 20100406
  5. PRILOSEC [Suspect]
     Active Substance: OMEPRAZOLE MAGNESIUM
     Indication: GASTROOESOPHAGEAL REFLUX DISEASE
     Dosage: GENERIC
     Route: 048
     Dates: start: 2014
  6. PRILOSEC OTC [Suspect]
     Active Substance: OMEPRAZOLE MAGNESIUM
     Route: 048
     Dates: start: 2000, end: 20160812

REACTIONS (8)
  - Renal failure [Unknown]
  - End stage renal disease [Unknown]
  - Hyperparathyroidism secondary [Unknown]
  - Nephrogenic anaemia [Unknown]
  - Gastrointestinal haemorrhage [Unknown]
  - Anaemia [Unknown]
  - Hypertension [Unknown]
  - Chronic kidney disease [Unknown]

NARRATIVE: CASE EVENT DATE: 20080422
